FAERS Safety Report 12114228 (Version 2)
Quarter: 2016Q1

REPORT INFORMATION
  Report Type: Spontaneous
  Country: JP (occurrence: JP)
  Receive Date: 20160225
  Receipt Date: 20160318
  Transmission Date: 20160526
  Serious: Yes (Death)
  Sender: FDA-Public Use
  Company Number: JP-UNITED THERAPEUTICS-UNT-2014-012165

PATIENT
  Age: 44 Year
  Sex: Female
  Weight: 74 kg

DRUGS (12)
  1. REMODULIN [Suspect]
     Active Substance: TREPROSTINIL
     Dosage: 0.1275 ?G/KG, CONTINUING
     Route: 058
  2. TRACLEER [Concomitant]
     Active Substance: BOSENTAN
     Indication: COLLAGEN-VASCULAR DISEASE
     Dosage: 125 MG, DAILY DOSE
     Route: 048
     Dates: start: 20090213
  3. BERAPROST SODIUM [Concomitant]
     Active Substance: BERAPROST SODIUM
     Indication: PRODUCT USED FOR UNKNOWN INDICATION
     Dosage: UNK
     Route: 048
     Dates: start: 200805, end: 200911
  4. REVATIO [Concomitant]
     Active Substance: SILDENAFIL CITRATE
     Dosage: 60 MG, DAILY DOSE
     Route: 048
     Dates: start: 20080523
  5. PREDONINE [Concomitant]
     Active Substance: PREDNISOLONE\PREDNISOLONE ACETATE\PREDNISOLONE SODIUM SUCCINATE
     Indication: SYSTEMIC LUPUS ERYTHEMATOSUS
     Dosage: 10 MG, QD
     Route: 048
     Dates: start: 20090731
  6. LANSOPRAZOLE. [Concomitant]
     Active Substance: LANSOPRAZOLE
     Indication: GASTROOESOPHAGEAL REFLUX DISEASE
     Dosage: 30 MG, QD
     Route: 048
     Dates: start: 20090731
  7. REVATIO [Concomitant]
     Active Substance: SILDENAFIL CITRATE
     Indication: COLLAGEN-VASCULAR DISEASE
     Dosage: UNK
     Route: 048
     Dates: start: 200711
  8. DIART [Concomitant]
     Active Substance: AZOSEMIDE
     Indication: COLLAGEN-VASCULAR DISEASE
     Dosage: 30 MG, QD
     Route: 048
     Dates: start: 20120815
  9. SAMSCA [Concomitant]
     Active Substance: TOLVAPTAN
     Indication: COLLAGEN-VASCULAR DISEASE
     Dosage: 7.5 MG, QD
     Route: 048
     Dates: start: 20130327
  10. REMODULIN [Suspect]
     Active Substance: TREPROSTINIL
     Dosage: 0.1325 ?G/KG, CONTINUING
     Route: 058
  11. REMODULIN [Suspect]
     Active Substance: TREPROSTINIL
     Indication: PULMONARY ARTERIAL HYPERTENSION
     Dosage: UNK
     Route: 058
     Dates: start: 20091201
  12. BONALON [Concomitant]
     Active Substance: ALENDRONATE SODIUM
     Indication: OSTEOPOROSIS
     Dosage: 35 MG, ONE TIME DOSE
     Route: 048
     Dates: start: 20090731

REACTIONS (2)
  - Medication error [Recovered/Resolved]
  - Right ventricular failure [Fatal]

NARRATIVE: CASE EVENT DATE: 201407
